FAERS Safety Report 17225043 (Version 1)
Quarter: 2019Q4

REPORT INFORMATION
  Report Type: Spontaneous
  Country: US (occurrence: US)
  Receive Date: 20191209
  Receipt Date: 20191209
  Transmission Date: 20200122
  Serious: Yes (Hospitalization)
  Sender: FDA-Public Use
  Company Number: None

PATIENT
  Age: 60 Year
  Sex: Female

DRUGS (3)
  1. ENTECAVIR 1MG TAB [Suspect]
     Active Substance: ENTECAVIR
     Route: 048
  2. TACROLIMUS 0.5MG [Concomitant]
     Active Substance: TACROLIMUS
  3. TACROLIMUS 1MG [Concomitant]
     Active Substance: TACROLIMUS

REACTIONS (2)
  - Therapy cessation [None]
  - Renal disorder [None]
